FAERS Safety Report 15750232 (Version 4)
Quarter: 2019Q1

REPORT INFORMATION
  Report Type: Report from Study
  Country: US (occurrence: US)
  Receive Date: 20181221
  Receipt Date: 20190321
  Transmission Date: 20190417
  Serious: Yes (Other)
  Sender: FDA-Public Use
  Company Number: US-PFIZER INC-2018411220

PATIENT
  Age: 48 Year
  Sex: Female

DRUGS (2)
  1. IBRANCE [Suspect]
     Active Substance: PALBOCICLIB
     Dosage: 100 MG, CYCLIC (21 DAYS ON, 7 DAYS OFF )(QD (EVERY DAY))
     Route: 048
     Dates: start: 20181204
  2. IBRANCE [Suspect]
     Active Substance: PALBOCICLIB
     Indication: BREAST CANCER FEMALE
     Dosage: 125 MG, CYCLIC (DAILY; 21 DAYS ON, 7 DAYS OFF)
     Route: 048
     Dates: start: 20180913, end: 20181119

REACTIONS (12)
  - White blood cell count decreased [Unknown]
  - Influenza like illness [Recovered/Resolved]
  - Blood creatinine increased [Not Recovered/Not Resolved]
  - Oral pain [Recovered/Resolved]
  - Fatigue [Not Recovered/Not Resolved]
  - Hypokalaemia [Not Recovered/Not Resolved]
  - Leukopenia [Recovering/Resolving]
  - Neutropenia [Unknown]
  - Hyponatraemia [Not Recovered/Not Resolved]
  - Constipation [Unknown]
  - Oropharyngeal pain [Recovered/Resolved]
  - Asthenia [Unknown]

NARRATIVE: CASE EVENT DATE: 2018
